FAERS Safety Report 4838117-X (Version None)
Quarter: 2005Q4

REPORT INFORMATION
  Report Type: 
  Country: None (occurrence: None)
  Receive Date: 20051128
  Receipt Date: 20050819
  Transmission Date: 20060501
  Serious: Yes (Death, Life-Threatening)
  Sender: FDA-Public Use
  Company Number: 2005CG01407

PATIENT
  Age: 77 Year
  Sex: Female

DRUGS (7)
  1. NEXIUM [Suspect]
     Route: 048
     Dates: end: 20050701
  2. URISPAS [Suspect]
     Route: 048
     Dates: end: 20050701
  3. DIFFU-K [Suspect]
     Route: 048
     Dates: end: 20050701
  4. FLECAINIDE ACETATE [Suspect]
     Route: 048
     Dates: end: 20050701
  5. MICARDIS [Suspect]
     Route: 048
     Dates: end: 20050701
  6. PHYSIOTENS [Suspect]
     Route: 048
     Dates: end: 20050701
  7. KARDEGIC [Concomitant]
     Dates: start: 20050401, end: 20050701

REACTIONS (20)
  - BLOOD BILIRUBIN INCREASED [None]
  - CHOLESTASIS [None]
  - COOMBS TEST POSITIVE [None]
  - CYTOLYTIC HEPATITIS [None]
  - EPISTAXIS [None]
  - GALLBLADDER DISORDER [None]
  - GASTRIC HAEMORRHAGE [None]
  - GASTRIC VARICES [None]
  - HAEMODIALYSIS [None]
  - HAEMODYNAMIC INSTABILITY [None]
  - HEPATIC ENCEPHALOPATHY [None]
  - HEPATIC ENZYME INCREASED [None]
  - HEPATIC FAILURE [None]
  - HEPATORENAL SYNDROME [None]
  - HIATUS HERNIA [None]
  - OESOPHAGEAL ULCER [None]
  - OESOPHAGITIS [None]
  - RENAL IMPAIRMENT [None]
  - RESPIRATORY DISORDER [None]
  - VARICES OESOPHAGEAL [None]
